FAERS Safety Report 6593271-7 (Version None)
Quarter: 2010Q1

REPORT INFORMATION
  Report Type: 
  Country: None (occurrence: None)
  Receive Date: 20100222
  Receipt Date: 20100209
  Transmission Date: 20100710
  Serious: Yes (Other)
  Sender: FDA-Public Use
  Company Number: GB-BAXTER-2009BH019752

PATIENT
  Age: 64 Year
  Sex: Female

DRUGS (4)
  1. HEPARIN SODIUM 1,000 UNITS AND SODIUM CHLORIDE 0.9% [Suspect]
     Indication: INTRAVENOUS CATHETER MANAGEMENT
     Route: 013
     Dates: start: 20091215, end: 20091215
  2. VISIPAQUE [Suspect]
     Indication: ANGIOGRAM
     Route: 065
     Dates: start: 20091215, end: 20091215
  3. ASPIRIN [Concomitant]
     Indication: DRUG USE FOR UNKNOWN INDICATION
     Route: 065
  4. LIDOCAINE [Concomitant]
     Indication: DRUG USE FOR UNKNOWN INDICATION
     Route: 065

REACTIONS (2)
  - CEREBROVASCULAR ACCIDENT [None]
  - HEMIPARESIS [None]
